FAERS Safety Report 5879608-2 (Version None)
Quarter: 2008Q3

REPORT INFORMATION
  Report Type: 
  Country: None (occurrence: None)
  Receive Date: 20080912
  Receipt Date: 20080903
  Transmission Date: 20090109
  Serious: Yes (Hospitalization)
  Sender: FDA-Public Use
  Company Number: US-JNJFOC-20070503906

PATIENT
  Sex: Female
  Weight: 64.86 kg

DRUGS (1)
  1. ORTHO EVRA [Suspect]
     Indication: CONTRACEPTION
     Route: 062

REACTIONS (6)
  - ACNE [None]
  - DEEP VEIN THROMBOSIS [None]
  - ERYTHEMA [None]
  - PRURITUS [None]
  - RASH [None]
  - SWELLING [None]
